FAERS Safety Report 9348762 (Version 1)
Quarter: 2013Q2

REPORT INFORMATION
  Report Type: Report from Study
  Country: US (occurrence: US)
  Receive Date: 20130614
  Receipt Date: 20130614
  Transmission Date: 20140414
  Serious: Yes (Hospitalization, Other)
  Sender: FDA-Public Use
  Company Number: US-PFIZER INC-2013175464

PATIENT
  Age: 62 Year
  Sex: Female

DRUGS (4)
  1. AMLODIPINE BESILATE [Suspect]
  2. BEVACIZUMAB [Suspect]
     Indication: GLIOBLASTOMA MULTIFORME
     Dosage: 10 MG/KG, EVERY 14 DAYS (TOTAL DOSE 873 MG)
     Route: 042
     Dates: start: 20130422
  3. BLINDED THERAPY [Suspect]
     Indication: GLIOBLASTOMA MULTIFORME
     Dosage: 100 MG, 2X/DAY
     Route: 048
     Dates: start: 20130422
  4. DEXAMETHASONE [Suspect]

REACTIONS (2)
  - Muscular weakness [Recovering/Resolving]
  - Spinal compression fracture [Unknown]
